FAERS Safety Report 22088222 (Version 7)
Quarter: 2023Q4

REPORT INFORMATION
  Report Type: Report from Study
  Country: AR (occurrence: AR)
  Receive Date: 20230313
  Receipt Date: 20231013
  Transmission Date: 20240110
  Serious: Yes (Other)
  Sender: FDA-Public Use
  Company Number: AR-002147023-NVSC2023AR049246

PATIENT
  Sex: Female

DRUGS (2)
  1. KISQALI [Suspect]
     Active Substance: RIBOCICLIB
     Indication: Breast cancer metastatic
     Dosage: 600 MG, QD (VIA MOUTH)
     Route: 048
     Dates: start: 20230227
  2. KISQALI [Suspect]
     Active Substance: RIBOCICLIB
     Dosage: UNK
     Route: 065
     Dates: start: 20230227, end: 20230328

REACTIONS (25)
  - Metastasis [Unknown]
  - Metastases to spine [Unknown]
  - Metastases to bone [Unknown]
  - Liver injury [Unknown]
  - Hyperglycaemia [Unknown]
  - Hepatitis [Unknown]
  - Hepatic enzyme increased [Unknown]
  - Anxiety [Unknown]
  - Hepatic steatosis [Unknown]
  - Liver disorder [Unknown]
  - Drug ineffective [Unknown]
  - Nervousness [Unknown]
  - Flatulence [Unknown]
  - Gait disturbance [Unknown]
  - Hypotension [Unknown]
  - Back pain [Unknown]
  - Asthenia [Unknown]
  - Drug intolerance [Unknown]
  - Malaise [Unknown]
  - Amnesia [Unknown]
  - Stress [Unknown]
  - Vision blurred [Unknown]
  - Movement disorder [Unknown]
  - Dizziness [Unknown]
  - Influenza [Unknown]

NARRATIVE: CASE EVENT DATE: 20230101
